FAERS Safety Report 23346660 (Version 1)
Quarter: 2023Q4

REPORT INFORMATION
  Report Type: Spontaneous
  Country: US (occurrence: None)
  Receive Date: 20231227
  Receipt Date: 20231227
  Transmission Date: 20240109
  Serious: No
  Sender: FDA-Public Use
  Company Number: None

PATIENT
  Sex: Male

DRUGS (2)
  1. PURIXAN [Suspect]
     Active Substance: MERCAPTOPURINE
     Indication: Chronic myeloid leukaemia
     Dosage: 1.5ML EVERY NIGHT ORAL?
     Route: 048
     Dates: start: 202302
  2. SPRYCEL [Concomitant]
     Active Substance: DASATINIB

REACTIONS (1)
  - Drug ineffective [None]
